FAERS Safety Report 6522181-6 (Version None)
Quarter: 2009Q4

REPORT INFORMATION
  Report Type: 
  Country: None (occurrence: None)
  Receive Date: 20091229
  Receipt Date: 20091229
  Transmission Date: 20100525
  Serious: No
  Sender: FDA-Public Use
  Company Number: None

PATIENT
  Age: 64 Year
  Sex: Female

DRUGS (3)
  1. MORPHINE [Suspect]
     Indication: PAIN
     Dosage: 0/2/15 PCA
     Dates: start: 20091004, end: 20091006
  2. COLACE [Concomitant]
  3. ENOXAPARIN SODIUM [Concomitant]

REACTIONS (1)
  - LETHARGY [None]
